FAERS Safety Report 7463851-5 (Version None)
Quarter: 2011Q2

REPORT INFORMATION
  Report Type: 
  Country: None (occurrence: None)
  Receive Date: 20110506
  Receipt Date: 20110503
  Transmission Date: 20111010
  Serious: Yes (Death, Hospitalization)
  Sender: FDA-Public Use
  Company Number: BH-B.I. PHARMACEUTICALS,INC./RIDGEFIELD-2011-CS-00333AE

PATIENT
  Age: 90 Year
  Sex: Male

DRUGS (3)
  1. PLAVIX [Concomitant]
  2. PRADAXA [Suspect]
     Indication: THROMBOSIS PROPHYLAXIS
  3. ASPIRIN [Concomitant]

REACTIONS (1)
  - MYOCARDIAL INFARCTION [None]
